FAERS Safety Report 8794684 (Version 2)
Quarter: 2012Q4

REPORT INFORMATION
  Report Type: 
  Country: US (occurrence: US)
  Receive Date: 20120917
  Receipt Date: 20121113
  Transmission Date: 20130627
  Serious: Yes (Other)
  Sender: FDA-Public Use
  Company Number: US-SANOFI-AVENTIS-2012SA066060

PATIENT
  Age: 74 Year
  Sex: Male
  Weight: 89.54 kg

DRUGS (8)
  1. MULTAQ [Suspect]
     Indication: ATRIAL FIBRILLATION
     Route: 048
     Dates: start: 20111202
  2. ASPIRIN [Concomitant]
  3. PLAVIX [Concomitant]
  4. ENALAPRIL [Concomitant]
  5. LEVOTHYROXINE [Concomitant]
  6. TOPROL XL [Concomitant]
  7. SIMVASTATIN [Concomitant]
  8. COUMADIN [Concomitant]

REACTIONS (1)
  - Blood thyroid stimulating hormone increased [Not Recovered/Not Resolved]
